FAERS Safety Report 13106417 (Version 1)
Quarter: 2017Q1

REPORT INFORMATION
  Report Type: Report from Study
  Country: FR (occurrence: FR)
  Receive Date: 20170111
  Receipt Date: 20170111
  Transmission Date: 20170428
  Serious: Yes (Other)
  Sender: FDA-Public Use
  Company Number: FR-TEVA-728044ISR

PATIENT
  Sex: Male

DRUGS (3)
  1. CISPLATIN. [Suspect]
     Active Substance: CISPLATIN
     Indication: GERM CELL CANCER
     Dosage: 100 MG/M2
     Route: 065
  2. ETOPOSIDE. [Suspect]
     Active Substance: ETOPOSIDE
     Indication: GERM CELL CANCER
     Route: 065
  3. BLEOMYCIN [Suspect]
     Active Substance: BLEOMYCIN SULFATE
     Indication: GERM CELL CANCER
     Route: 065

REACTIONS (1)
  - Penile vein thrombosis [Unknown]
